FAERS Safety Report 5283894-X (Version None)
Quarter: 2007Q2

REPORT INFORMATION
  Report Type: 
  Country: None (occurrence: None)
  Receive Date: 20070402
  Receipt Date: 20070327
  Transmission Date: 20071010
  Serious: Yes (Disabling)
  Sender: FDA-Public Use
  Company Number: US-MERCK-0703USA05143

PATIENT
  Age: 71 Year
  Sex: Female

DRUGS (6)
  1. JANUVIA [Suspect]
     Indication: DIABETES MELLITUS
     Route: 048
     Dates: start: 20070122, end: 20070223
  2. VYTORIN [Concomitant]
     Route: 048
  3. ATENOLOL [Concomitant]
     Route: 065
  4. PREVACID [Concomitant]
     Route: 065
  5. GABAPENTIN [Concomitant]
     Route: 065
  6. VICODIN [Concomitant]
     Route: 065

REACTIONS (4)
  - BLOOD GLUCOSE INCREASED [None]
  - GLYCOSYLATED HAEMOGLOBIN INCREASED [None]
  - MALAISE [None]
  - WEIGHT DECREASED [None]
